FAERS Safety Report 5719033-8 (Version None)
Quarter: 2008Q2

REPORT INFORMATION
  Report Type: 
  Country: None (occurrence: None)
  Receive Date: 20080423
  Receipt Date: 20080409
  Transmission Date: 20081010
  Serious: Yes (Death, Hospitalization, Other)
  Sender: FDA-Public Use
  Company Number: 2008-00828

PATIENT
  Age: 65 Year
  Sex: Female

DRUGS (1)
  1. VELCADE [Suspect]
     Indication: MULTIPLE MYELOMA
     Dates: start: 20070901

REACTIONS (5)
  - CONDITION AGGRAVATED [None]
  - HERPES ZOSTER [None]
  - PNEUMONIA [None]
  - PSEUDOMEMBRANOUS COLITIS [None]
  - RENAL IMPAIRMENT [None]
